FAERS Safety Report 7036466-0 (Version None)
Quarter: 2010Q4

REPORT INFORMATION
  Report Type: 
  Country: None (occurrence: None)
  Receive Date: 20101011
  Receipt Date: 20101001
  Transmission Date: 20110411
  Serious: Yes (Hospitalization)
  Sender: FDA-Public Use
  Company Number: JP-BIOGENIDEC-2010BI017237

PATIENT
  Age: 47 Year
  Sex: Male

DRUGS (9)
  1. AVONEX [Suspect]
     Indication: RELAPSING-REMITTING MULTIPLE SCLEROSIS
     Route: 030
     Dates: start: 20100416, end: 20100416
  2. SILECE [Concomitant]
     Dates: start: 20080303
  3. TEGRETOL [Concomitant]
     Dates: start: 20060529, end: 20100719
  4. ALTAT [Concomitant]
     Dates: start: 20080204
  5. FOSAMAC [Concomitant]
     Dates: start: 20090106
  6. WARFARIN SODIUM [Concomitant]
     Dates: start: 20090415
  7. PREDNISOLONE [Concomitant]
     Dates: start: 20051201
  8. ALOSENN [Concomitant]
     Dates: start: 20100408, end: 20100517
  9. TELEMINSOFT [Concomitant]
     Dates: start: 20100407

REACTIONS (3)
  - ATAXIA [None]
  - DELIRIUM [None]
  - DISORIENTATION [None]
